FAERS Safety Report 5460978-4 (Version None)
Quarter: 2007Q3

REPORT INFORMATION
  Report Type: 
  Country: None (occurrence: None)
  Receive Date: 20070822
  Receipt Date: 20070124
  Transmission Date: 20080115
  Serious: Yes (Other)
  Sender: FDA-Public Use
  Company Number: 2007006823

PATIENT
  Age: 65 Year
  Sex: Female
  Weight: 90.7 kg

DRUGS (11)
  1. NORVASC [Suspect]
     Dosage: (5 MG), ORAL
     Route: 048
     Dates: end: 20060101
  2. BYETTA [Suspect]
     Indication: TYPE 2 DIABETES MELLITUS
     Dosage: 10 MCG (10 MCG, IN THE MORNING), SUBCUTANEOUS; 10 MCG (5 MCG, 2 IN 1 D), SUBCUTANEOUS;
     Route: 058
     Dates: start: 20060101, end: 20061201
  3. BYETTA [Suspect]
     Indication: TYPE 2 DIABETES MELLITUS
     Dosage: 10 MCG (10 MCG, IN THE MORNING), SUBCUTANEOUS; 10 MCG (5 MCG, 2 IN 1 D), SUBCUTANEOUS;
     Route: 058
     Dates: start: 20061001, end: 20061201
  4. BYETTA [Suspect]
     Indication: TYPE 2 DIABETES MELLITUS
     Dosage: 10 MCG (10 MCG, IN THE MORNING), SUBCUTANEOUS; 10 MCG (5 MCG, 2 IN 1 D), SUBCUTANEOUS;
     Route: 058
     Dates: start: 20061201
  5. METFORMIN HCL [Concomitant]
  6. GLYBURIDE [Concomitant]
  7. ACTOS [Concomitant]
  8. METOPROLOL TARTRATE [Concomitant]
  9. VYTORIN [Concomitant]
  10. PLAVIX [Concomitant]
  11. DIOVAN [Concomitant]

REACTIONS (5)
  - ANXIETY [None]
  - BLOOD GLUCOSE INCREASED [None]
  - BLOOD PRESSURE INCREASED [None]
  - DECREASED APPETITE [None]
  - WEIGHT DECREASED [None]
